FAERS Safety Report 4721181-6 (Version None)
Quarter: 2005Q3

REPORT INFORMATION
  Report Type: 
  Country: None (occurrence: None)
  Receive Date: 20050722
  Receipt Date: 20050713
  Transmission Date: 20060218
  Serious: Yes (Other)
  Sender: FDA-Public Use
  Company Number: JP-MERCK-0507USA02036

PATIENT
  Age: 49 Year
  Sex: Male

DRUGS (1)
  1. PRIMAXIN [Suspect]
     Indication: ENDOCARDITIS
     Route: 042
     Dates: start: 20020201

REACTIONS (7)
  - BACTERAEMIA [None]
  - CARDIAC VALVE VEGETATION [None]
  - ENDOCARDITIS [None]
  - GLOMERULONEPHRITIS [None]
  - HAEMODIALYSIS [None]
  - HEPATOTOXICITY [None]
  - IMMUNE SYSTEM DISORDER [None]
